FAERS Safety Report 5025384-5 (Version None)
Quarter: 2006Q2

REPORT INFORMATION
  Report Type: 
  Country: None (occurrence: None)
  Receive Date: 20060426
  Receipt Date: 20060111
  Transmission Date: 20061013
  Serious: Yes (Other)
  Sender: FDA-Public Use
  Company Number: 2006007227

PATIENT
  Age: 56 Year
  Sex: Female

DRUGS (8)
  1. LYRICA [Suspect]
     Indication: TREMOR
     Dosage: 100 MG (50 MG, 2 IN 1 D), ORAL
     Route: 048
     Dates: start: 20050101
  2. TOPAMAX [Suspect]
     Indication: ILL-DEFINED DISORDER
  3. WELLBUTRIN [Concomitant]
  4. KLONOPIN [Concomitant]
  5. THYROID TAB [Concomitant]
  6. VITAMINS NOS (VITAMINS NOS) [Concomitant]
  7. SOMA [Concomitant]
  8. AMBIEN [Concomitant]

REACTIONS (6)
  - DISTURBANCE IN ATTENTION [None]
  - DRUG EFFECT INCREASED [None]
  - DRUG INEFFECTIVE [None]
  - DRY MOUTH [None]
  - OEDEMA PERIPHERAL [None]
  - SOMNOLENCE [None]
